FAERS Safety Report 7967432-6 (Version None)
Quarter: 2011Q4

REPORT INFORMATION
  Report Type: 
  Country: None (occurrence: None)
  Receive Date: 20111209
  Receipt Date: 20111130
  Transmission Date: 20120403
  Serious: Yes (Disabling)
  Sender: FDA-Public Use
  Company Number: AU-B.I. PHARMACEUTICALS,INC./RIDGEFIELD-2011-AU-02371AU

PATIENT
  Sex: Female
  Weight: 58 kg

DRUGS (6)
  1. ZESTRIL [Concomitant]
     Dosage: 10 MG
  2. PRADAXA [Suspect]
     Dosage: 220 MG
     Dates: end: 20110926
  3. PRADAXA [Suspect]
     Dosage: 110 MG
     Dates: start: 20110927, end: 20111120
  4. LANOXIN [Concomitant]
  5. PRADAXA [Suspect]
     Indication: ATRIAL FIBRILLATION
     Dosage: 300 MG
     Dates: start: 20110816
  6. MINAX [Concomitant]
     Dosage: 100 MG

REACTIONS (4)
  - MYALGIA [None]
  - RASH VESICULAR [None]
  - COGNITIVE DISORDER [None]
  - JOINT SWELLING [None]
